FAERS Safety Report 14693872 (Version 5)
Quarter: 2021Q4

REPORT INFORMATION
  Report Type: Spontaneous
  Country: US (occurrence: US)
  Receive Date: 20180329
  Receipt Date: 20211215
  Transmission Date: 20220304
  Serious: Yes (Hospitalization, Other)
  Sender: FDA-Public Use
  Company Number: US-GLAXOSMITHKLINE-US2018GSK053293

PATIENT
  Age: 53 Year
  Sex: Male

DRUGS (6)
  1. PREVACID 24 HR [Suspect]
     Active Substance: LANSOPRAZOLE
     Indication: Product used for unknown indication
     Dosage: UNK
     Route: 048
     Dates: start: 199001, end: 201101
  2. PREVACID [Suspect]
     Active Substance: LANSOPRAZOLE
     Indication: Product used for unknown indication
     Dosage: UNK
     Route: 048
     Dates: start: 199001, end: 201101
  3. NEXIUM [Suspect]
     Active Substance: ESOMEPRAZOLE MAGNESIUM
     Indication: Product used for unknown indication
     Dosage: UNK
     Route: 065
  4. NEXIUM 24HR [Suspect]
     Active Substance: ESOMEPRAZOLE MAGNESIUM
     Indication: Dyspepsia
     Dosage: 20 MG, QD
     Route: 048
     Dates: start: 2014, end: 2016
  5. PRILOSEC [Suspect]
     Active Substance: OMEPRAZOLE MAGNESIUM
     Indication: Product used for unknown indication
     Dosage: 20 MG, QD
     Route: 065
     Dates: start: 2005, end: 2010
  6. PRILOSEC [Suspect]
     Active Substance: OMEPRAZOLE MAGNESIUM
     Indication: Product used for unknown indication
     Dosage: UNK
     Route: 065

REACTIONS (18)
  - End stage renal disease [Unknown]
  - Dialysis [Unknown]
  - Pyelonephritis [Unknown]
  - Perinephric abscess [Unknown]
  - Diabetic nephropathy [Unknown]
  - Haemodialysis [Unknown]
  - Renal impairment [Unknown]
  - Arteriovenous fistula operation [Unknown]
  - Acute kidney injury [Unknown]
  - Nephritis [Unknown]
  - Chronic kidney disease [Unknown]
  - Kidney infection [Unknown]
  - Nephrosclerosis [Unknown]
  - Renal failure [Unknown]
  - Arteriovenous fistula site complication [Unknown]
  - Dialysis related complication [Unknown]
  - Nephropathy [Unknown]
  - Proteinuria [Unknown]

NARRATIVE: CASE EVENT DATE: 19990713
